FAERS Safety Report 23193150 (Version 11)
Quarter: 2025Q2

REPORT INFORMATION
  Report Type: Report from Study
  Country: PA (occurrence: None)
  Receive Date: 20231116
  Receipt Date: 20250603
  Transmission Date: 20250717
  Serious: Yes (Life-Threatening, Hospitalization, Other)
  Sender: INCYTE
  Company Number: PA-002147023-NVSC2023PA239844

PATIENT
  Age: 71 Year
  Weight: 61 kg

DRUGS (13)
  1. RUXOLITINIB [Suspect]
     Active Substance: RUXOLITINIB
     Indication: Myelofibrosis
     Dosage: 40 MG, BID (4 TABLET A.M. AND 4 TABLET P.M)
  2. RUXOLITINIB [Suspect]
     Active Substance: RUXOLITINIB
     Indication: Polycythaemia vera
  3. RUXOLITINIB [Suspect]
     Active Substance: RUXOLITINIB
     Dosage: 10 MG (1 TABLET A.M. AND 1 TABLET P.M.)
     Route: 065
  4. RUXOLITINIB [Suspect]
     Active Substance: RUXOLITINIB
     Dosage: 10 MG, BID
  5. RUXOLITINIB [Suspect]
     Active Substance: RUXOLITINIB
     Dosage: 20 MG, BID
  6. RUXOLITINIB [Suspect]
     Active Substance: RUXOLITINIB
  7. RUXOLITINIB [Suspect]
     Active Substance: RUXOLITINIB
     Dosage: 20 MG, BID
  8. RUXOLITINIB [Suspect]
     Active Substance: RUXOLITINIB
     Dosage: 15 MG, BID
  9. RUXOLITINIB [Suspect]
     Active Substance: RUXOLITINIB
     Dosage: 10 MG, BID
  10. RUXOLITINIB [Suspect]
     Active Substance: RUXOLITINIB
  11. RUXOLITINIB [Suspect]
     Active Substance: RUXOLITINIB
     Dosage: 15 MG/KG, BID
  12. ERYTHROPOIETIN [Suspect]
     Active Substance: ERYTHROPOIETIN
     Indication: Product used for unknown indication
     Route: 065
  13. ERYTHROPOIETIN [Suspect]
     Active Substance: ERYTHROPOIETIN
     Route: 065

REACTIONS (37)
  - Anxiety [Unknown]
  - Synovial cyst [Recovering/Resolving]
  - Back pain [Recovering/Resolving]
  - Epistaxis [Unknown]
  - Feeling hot [Recovering/Resolving]
  - Contusion [Recovering/Resolving]
  - Drug intolerance [Unknown]
  - Thrombosis [Recovering/Resolving]
  - Arthralgia [Not Recovered/Not Resolved]
  - COVID-19 [Recovered/Resolved]
  - Discomfort [Unknown]
  - Feeling abnormal [Unknown]
  - Pyrexia [Recovering/Resolving]
  - Hunger [Not Recovered/Not Resolved]
  - Procedural haemorrhage [Unknown]
  - Fatigue [Not Recovered/Not Resolved]
  - Dizziness [Unknown]
  - Malaise [Unknown]
  - Influenza [Recovered/Resolved]
  - Acne [Unknown]
  - Platelet count decreased [Unknown]
  - Blood urine present [Recovered/Resolved]
  - Dyspepsia [Recovered/Resolved]
  - Haematoma [Unknown]
  - Haematuria [Recovered/Resolved]
  - Splenomegaly [Unknown]
  - Burning sensation [Unknown]
  - Inflammation [Unknown]
  - Haemoglobin decreased [Not Recovered/Not Resolved]
  - Mass [Unknown]
  - Prescribed overdose [Recovered/Resolved]
  - Pain in extremity [Recovering/Resolving]
  - Malaise [Recovered/Resolved]
  - Chills [Recovering/Resolving]
  - Product after taste [Unknown]
  - Tooth disorder [Unknown]
  - Nausea [Unknown]
